FAERS Safety Report 9790333 (Version 1)
Quarter: 2013Q4

REPORT INFORMATION
  Report Type: Report from Study
  Country: LB (occurrence: LB)
  Receive Date: 20131231
  Receipt Date: 20131231
  Transmission Date: 20140711
  Serious: Yes (Death, Hospitalization)
  Sender: FDA-Public Use
  Company Number: LB-SA-2013SA134937

PATIENT
  Age: 65 Year
  Sex: Male

DRUGS (10)
  1. LANTUS SOLOSTAR [Suspect]
     Indication: TYPE 2 DIABETES MELLITUS
     Dosage: DOSE:30 UNIT(S)
     Route: 058
     Dates: start: 20130627
  2. INSULIN GLULISINE [Suspect]
     Indication: TYPE 2 DIABETES MELLITUS
     Route: 065
     Dates: start: 20130627
  3. EPANUTIN [Concomitant]
  4. SINTROM [Concomitant]
  5. ASPIRIN [Concomitant]
  6. ALDACTONE [Concomitant]
  7. CORVASAL [Concomitant]
  8. NEURONTIN [Concomitant]
  9. DILATREND [Concomitant]
  10. VASTAREL [Concomitant]

REACTIONS (1)
  - Cardiac disorder [Fatal]
